FAERS Safety Report 15400864 (Version 1)
Quarter: 2018Q3

REPORT INFORMATION
  Report Type: Spontaneous
  Country: US (occurrence: US)
  Receive Date: 20180919
  Receipt Date: 20180919
  Transmission Date: 20181010
  Serious: No
  Sender: FDA-Public Use
  Company Number: US-AUROBINDO-AUR-APL-2018-014375

PATIENT
  Sex: Female
  Weight: 56.24 kg

DRUGS (1)
  1. MONTELUKAST [Suspect]
     Active Substance: MONTELUKAST SODIUM
     Indication: DYSPNOEA
     Dosage: 10 MILLIGRAM, DAILY
     Route: 048
     Dates: start: 20180202

REACTIONS (2)
  - Arthralgia [Recovered/Resolved]
  - Gait inability [Recovered/Resolved]

NARRATIVE: CASE EVENT DATE: 2018
